FAERS Safety Report 6469374-4 (Version None)
Quarter: 2009Q4

REPORT INFORMATION
  Report Type: 
  Country: None (occurrence: None)
  Receive Date: 20091203
  Receipt Date: 20091120
  Transmission Date: 20100525
  Serious: Yes (Hospitalization)
  Sender: FDA-Public Use
  Company Number: FR-ELI_LILLY_AND_COMPANY-FR200911005244

PATIENT
  Age: 77 Year
  Sex: Female

DRUGS (3)
  1. FORTEO [Suspect]
     Indication: OSTEOPOROSIS
     Dosage: 20 UG, DAILY (1/D)
     Dates: start: 20090803
  2. SINTROM [Concomitant]
     Indication: CARDIAC DISORDER
     Dosage: 0.25 D/F, DAILY (1/D)
     Dates: start: 20060101
  3. CORTISONE [Concomitant]
     Indication: RENAL PAIN
     Dosage: 3 MG, DAILY (1/D)

REACTIONS (6)
  - CONTUSION [None]
  - FALL [None]
  - FATIGUE [None]
  - LOSS OF CONSCIOUSNESS [None]
  - MALAISE [None]
  - RASH PAPULAR [None]
